FAERS Safety Report 9724849 (Version 1)
Quarter: 2013Q4

REPORT INFORMATION
  Report Type: Spontaneous
  Country: GB (occurrence: GB)
  Receive Date: 20131202
  Receipt Date: 20131202
  Transmission Date: 20140711
  Serious: Yes (Other)
  Sender: FDA-Public Use
  Company Number: GB-SA-2013SA121488

PATIENT
  Age: 62 Year
  Sex: Male
  Weight: 118 kg

DRUGS (6)
  1. CLOPIDOGREL BISULFATE [Suspect]
     Indication: PRODUCT USED FOR UNKNOWN INDICATION
     Route: 048
     Dates: start: 20131001, end: 20131010
  2. ASPIRIN [Concomitant]
  3. TAMOXIFEN [Concomitant]
  4. TAMSULOSIN [Concomitant]
  5. BICALUTAMIDE [Concomitant]
  6. SOLIFENACIN SUCCINATE [Concomitant]

REACTIONS (1)
  - Dysphagia [Recovered/Resolved]
